FAERS Safety Report 4441717-2 (Version None)
Quarter: 2004Q3

REPORT INFORMATION
  Report Type: 
  Country: None (occurrence: None)
  Receive Date: 20040907
  Receipt Date: 20040825
  Transmission Date: 20050211
  Serious: Yes (Other)
  Sender: FDA-Public Use
  Company Number: DE-JNJFOC-20040706552

PATIENT
  Age: 30 Year
  Sex: Male

DRUGS (4)
  1. REMICADE [Suspect]
     Indication: ANKYLOSING SPONDYLITIS
     Route: 042
  2. INDOMETHACIN [Concomitant]
  3. PANTOPRAZOL [Concomitant]
  4. CALCIUM CARBONAT [Concomitant]

REACTIONS (1)
  - TUBERCULOSIS [None]
